FAERS Safety Report 24657253 (Version 1)
Quarter: 2024Q4

REPORT INFORMATION
  Report Type: Other
  Country: FR (occurrence: FR)
  Receive Date: 20241125
  Receipt Date: 20241125
  Transmission Date: 20250115
  Serious: Yes (Life-Threatening, Hospitalization)
  Sender: ZYDUS PHARM
  Company Number: None

PATIENT

DRUGS (2)
  1. ACETAMINOPHEN [Suspect]
     Active Substance: ACETAMINOPHEN
     Indication: Injury
     Dosage: UNK
     Route: 048
     Dates: start: 2024, end: 20241001
  2. ACETAMINOPHEN [Suspect]
     Active Substance: ACETAMINOPHEN
     Indication: Injury
     Dosage: 2 GRAM, 1 TOTAL
     Route: 042
     Dates: start: 20241001, end: 20241002

REACTIONS (4)
  - Hepatic encephalopathy [Recovered/Resolved]
  - Hepatitis fulminant [Recovered/Resolved]
  - Hepatic failure [Recovered/Resolved]
  - Analgesic drug level increased [Recovered/Resolved]

NARRATIVE: CASE EVENT DATE: 20241002
